FAERS Safety Report 14151809 (Version 1)
Quarter: 2017Q4

REPORT INFORMATION
  Report Type: Spontaneous
  Country: US (occurrence: US)
  Receive Date: 20171101
  Receipt Date: 20171101
  Transmission Date: 20180321
  Serious: Yes (Life-Threatening)
  Sender: FDA-Public Use
  Company Number: None

PATIENT
  Age: 66 Year
  Sex: Male
  Weight: 81 kg

DRUGS (1)
  1. BIVALIRUDIN. [Suspect]
     Active Substance: BIVALIRUDIN
     Indication: MYOCARDIAL INFARCTION
     Route: 041
     Dates: start: 20171031, end: 20171031

REACTIONS (2)
  - Infusion related reaction [None]
  - Thrombosis [None]

NARRATIVE: CASE EVENT DATE: 20171031
